FAERS Safety Report 16663760 (Version 1)
Quarter: 2019Q3

REPORT INFORMATION
  Report Type: Spontaneous
  Country: AT (occurrence: AT)
  Receive Date: 20190802
  Receipt Date: 20190802
  Transmission Date: 20191004
  Serious: Yes (Death, Other)
  Sender: FDA-Public Use
  Company Number: AT-PFIZER INC-2019327815

PATIENT
  Age: 52 Year
  Sex: Male

DRUGS (3)
  1. LEVETIRACETAM. [Suspect]
     Active Substance: LEVETIRACETAM
     Indication: PARTIAL SEIZURES
     Dosage: UNK
  2. VIMPAT [Suspect]
     Active Substance: LACOSAMIDE
     Indication: PARTIAL SEIZURES
     Dosage: UNK  2X150MG (OR 2X200MG)
  3. VIMPAT [Suspect]
     Active Substance: LACOSAMIDE
     Dosage: UNK (REDUCED DOSE)

REACTIONS (3)
  - Urosepsis [Fatal]
  - Syncope [Unknown]
  - Atrioventricular block second degree [Unknown]
